FAERS Safety Report 12009541 (Version 3)
Quarter: 2016Q3

REPORT INFORMATION
  Report Type: Spontaneous
  Country: AU (occurrence: AU)
  Receive Date: 20160205
  Receipt Date: 20160701
  Transmission Date: 20161109
  Serious: Yes (Other)
  Sender: FDA-Public Use
  Company Number: AU-EMD SERONO-8065917

PATIENT
  Sex: Female

DRUGS (5)
  1. REBIF [Suspect]
     Active Substance: INTERFERON BETA-1A
     Indication: MULTIPLE SCLEROSIS
     Dates: start: 201505
  2. VITAMIN D                          /00107901/ [Concomitant]
     Active Substance: ERGOCALCIFEROL
     Indication: PRODUCT USED FOR UNKNOWN INDICATION
  3. REBIF [Suspect]
     Active Substance: INTERFERON BETA-1A
     Dosage: TITRATED TO FULL DOSE (UNSPECIFIED)
     Dates: start: 201507, end: 20160205
  4. VITAMIN B2                         /00154901/ [Concomitant]
     Indication: VITAMIN SUPPLEMENTATION
  5. MICROLUT [Concomitant]
     Indication: PRODUCT USED FOR UNKNOWN INDICATION
     Dosage: RECOMMENCED AT AN UNKNOWN DOSAGE

REACTIONS (3)
  - Migraine [Not Recovered/Not Resolved]
  - Headache [Not Recovered/Not Resolved]
  - Fatigue [Unknown]

NARRATIVE: CASE EVENT DATE: 2015
